FAERS Safety Report 8906398 (Version 1)
Quarter: 2012Q4

REPORT INFORMATION
  Report Type: Spontaneous
  Country: US (occurrence: None)
  Receive Date: 20121108
  Receipt Date: 20121108
  Transmission Date: 20130627
  Serious: Yes (Other)
  Sender: FDA-Public Use
  Company Number: TPA2012A08587

PATIENT
  Age: 80 Year
  Sex: Female

DRUGS (1)
  1. DEXILANT [Suspect]
     Dates: start: 201210, end: 201210

REACTIONS (1)
  - Atrial fibrillation [None]
